FAERS Safety Report 9949951 (Version 1)
Quarter: 2014Q1

REPORT INFORMATION
  Report Type: Spontaneous
  Country: US (occurrence: US)
  Receive Date: 20140304
  Receipt Date: 20140304
  Transmission Date: 20141002
  Serious: Yes (Hospitalization)
  Sender: FDA-Public Use
  Company Number: US-SA-2014SA026125

PATIENT
  Sex: Female

DRUGS (2)
  1. PLAVIX [Suspect]
     Indication: STENT PLACEMENT
     Route: 048
  2. PROTONIX [Interacting]
     Route: 065

REACTIONS (3)
  - Angiopathy [Unknown]
  - Inhibitory drug interaction [Unknown]
  - Drug ineffective [Unknown]
